FAERS Safety Report 19829891 (Version 1)
Quarter: 2021Q3

REPORT INFORMATION
  Report Type: Spontaneous
  Country: US (occurrence: US)
  Receive Date: 20210914
  Receipt Date: 20210914
  Transmission Date: 20211014
  Serious: Yes (Death, Life-Threatening, Hospitalization)
  Sender: FDA-Public Use
  Company Number: None

PATIENT
  Age: 33 Year
  Sex: Male
  Weight: 92.7 kg

DRUGS (1)
  1. MIRCERA [Suspect]
     Active Substance: METHOXY POLYETHYLENE GLYCOL-EPOETIN BETA
     Indication: ANAEMIA
     Dosage: ?          OTHER ROUTE:INTRAVENOUS PUSH?
     Dates: start: 20210903, end: 20210903

REACTIONS (8)
  - Dyspnoea [None]
  - Nausea [None]
  - Pulse absent [None]
  - Respiratory arrest [None]
  - Dizziness [None]
  - Unresponsive to stimuli [None]
  - Dialysis [None]
  - Vomiting [None]

NARRATIVE: CASE EVENT DATE: 20210903
